FAERS Safety Report 12169190 (Version 5)
Quarter: 2016Q2

REPORT INFORMATION
  Report Type: Report from Study
  Country: US (occurrence: US)
  Receive Date: 20160310
  Receipt Date: 20160401
  Transmission Date: 20160815
  Serious: No
  Sender: FDA-Public Use
  Company Number: PHEH2016US005804

PATIENT
  Age: 51 Year
  Sex: Female

DRUGS (2)
  1. AROMASIN [Concomitant]
     Active Substance: EXEMESTANE
     Indication: PRODUCT USED FOR UNKNOWN INDICATION
     Route: 065
  2. AFINITOR [Suspect]
     Active Substance: EVEROLIMUS
     Indication: BREAST CANCER
     Dosage: 10 MG, QD
     Route: 048
     Dates: start: 20160302

REACTIONS (10)
  - Abdominal pain upper [Not Recovered/Not Resolved]
  - Dysgeusia [Not Recovered/Not Resolved]
  - Epistaxis [Recovered/Resolved]
  - Nausea [Not Recovered/Not Resolved]
  - Rash [Not Recovered/Not Resolved]
  - Headache [Recovering/Resolving]
  - Asthenia [Not Recovered/Not Resolved]
  - Tongue disorder [Recovered/Resolved]
  - Dizziness [Unknown]
  - Nasal congestion [Not Recovered/Not Resolved]

NARRATIVE: CASE EVENT DATE: 20160308
